FAERS Safety Report 7866940-6 (Version None)
Quarter: 2011Q4

REPORT INFORMATION
  Report Type: 
  Country: None (occurrence: None)
  Receive Date: 20111028
  Receipt Date: 20111014
  Transmission Date: 20120403
  Serious: Yes (Death)
  Sender: FDA-Public Use
  Company Number: IN-ROCHE-1005504

PATIENT
  Sex: Male

DRUGS (1)
  1. ACTIVASE [Suspect]
     Indication: ISCHAEMIC STROKE
     Dosage: DOSE:5 MG BOLUS WITH 45 MG PER HOUR.
     Route: 042

REACTIONS (2)
  - CEREBROVASCULAR ACCIDENT [None]
  - BRAIN STEM SYNDROME [None]
